FAERS Safety Report 23162036 (Version 1)
Quarter: 2023Q4

REPORT INFORMATION
  Report Type: Spontaneous
  Country: US (occurrence: US)
  Receive Date: 20231109
  Receipt Date: 20231109
  Transmission Date: 20240110
  Serious: No
  Sender: FDA-Public Use
  Company Number: US-BIOCON RESEARCH LIMITED-BCN-2023-001652

PATIENT
  Age: 70 Year
  Sex: Female
  Weight: 78.542 kg

DRUGS (1)
  1. EVEROLIMUS [Suspect]
     Active Substance: EVEROLIMUS
     Indication: Product used for unknown indication
     Route: 048

REACTIONS (8)
  - Eczema [Unknown]
  - Fatigue [Unknown]
  - Taste disorder [Unknown]
  - Myalgia [Unknown]
  - Stomatitis [Unknown]
  - Product use complaint [Unknown]
  - Poor quality product administered [Unknown]
  - Product physical issue [Unknown]
